FAERS Safety Report 7744010-5 (Version None)
Quarter: 2011Q3

REPORT INFORMATION
  Report Type: 
  Country: None (occurrence: None)
  Receive Date: 20110912
  Receipt Date: 20110901
  Transmission Date: 20111222
  Serious: Yes (Other)
  Sender: FDA-Public Use
  Company Number: US-BAYER-2011-064536

PATIENT
  Age: 29 Year
  Sex: Female
  Weight: 75.737 kg

DRUGS (3)
  1. MIRENA [Suspect]
     Indication: CONTRACEPTION
     Dosage: 20 MCG/24HR, CONT
     Route: 015
     Dates: start: 20100223, end: 20110518
  2. CLINDAMYCIN [Concomitant]
  3. KETZOL [Concomitant]

REACTIONS (3)
  - PAIN [None]
  - ECTOPIC PREGNANCY WITH INTRAUTERINE DEVICE [None]
  - ANTEPARTUM HAEMORRHAGE [None]
